FAERS Safety Report 9485415 (Version 1)
Quarter: 2013Q3

REPORT INFORMATION
  Report Type: Spontaneous
  Country: CH (occurrence: CH)
  Receive Date: 20130829
  Receipt Date: 20130829
  Transmission Date: 20140515
  Serious: Yes (Other)
  Sender: FDA-Public Use
  Company Number: CH-009507513-1308CHE010479

PATIENT
  Age: 46 Year
  Sex: Male

DRUGS (2)
  1. REMERON [Suspect]
     Dosage: 180 MG (6 DOEING UNITS), ONCE
     Route: 048
     Dates: start: 20130623, end: 20130623
  2. BROMAZEPAM [Suspect]
     Dosage: 21 MG (7 DOSING UNITS), ONCE
     Route: 048
     Dates: start: 20130623, end: 20130623

REACTIONS (3)
  - Suicide attempt [Recovered/Resolved]
  - Somnolence [Recovered/Resolved]
  - Agitation [Recovered/Resolved]
